FAERS Safety Report 7067948-3 (Version None)
Quarter: 2010Q4

REPORT INFORMATION
  Report Type: 
  Country: None (occurrence: None)
  Receive Date: 20101020
  Receipt Date: 20101011
  Transmission Date: 20110411
  Serious: Yes (Hospitalization, Other)
  Sender: FDA-Public Use
  Company Number: 2010SP054729

PATIENT
  Age: 26 Year
  Sex: Female
  Weight: 43.0917 kg

DRUGS (2)
  1. IMPLANON [Suspect]
     Indication: CONTRACEPTION
     Dosage: 1 DF
     Dates: start: 20090101
  2. NOVOLIN 70/30 [Concomitant]

REACTIONS (5)
  - DEPRESSION [None]
  - HYPOAESTHESIA [None]
  - INTRACRANIAL ANEURYSM [None]
  - MUSCLE SPASMS [None]
  - SUICIDE ATTEMPT [None]
